FAERS Safety Report 22611819 (Version 1)
Quarter: 2023Q2

REPORT INFORMATION
  Report Type: Spontaneous
  Country: KR (occurrence: KR)
  Receive Date: 20230616
  Receipt Date: 20230616
  Transmission Date: 20230722
  Serious: Yes (Other)
  Sender: FDA-Public Use
  Company Number: KR-ANIPHARMA-2023-KR-000041

PATIENT
  Age: 65 Year
  Sex: Female

DRUGS (4)
  1. ATACAND [Suspect]
     Active Substance: CANDESARTAN CILEXETIL
     Indication: Product used for unknown indication
     Dosage: .5 DF DAILY
     Route: 048
     Dates: start: 20181214
  2. UNSPECIFIED INGREDIENT [Suspect]
     Active Substance: UNSPECIFIED INGREDIENT
     Dosage: 1 DF TID
     Route: 065
     Dates: start: 20181214
  3. ASPIRIN [Suspect]
     Active Substance: ASPIRIN
     Dosage: 1 DF DAILY
     Route: 065
     Dates: start: 20181214
  4. ATORVASTATIN CALCIUM [Suspect]
     Active Substance: ATORVASTATIN CALCIUM
     Dosage: 1 DF DAILY
     Route: 065
     Dates: start: 20181214

REACTIONS (1)
  - Dermatitis bullous [Unknown]

NARRATIVE: CASE EVENT DATE: 20181214
